FAERS Safety Report 25960799 (Version 1)
Quarter: 2025Q4

REPORT INFORMATION
  Report Type: Spontaneous
  Country: US (occurrence: US)
  Receive Date: 20251027
  Receipt Date: 20251027
  Transmission Date: 20260117
  Serious: No
  Sender: SANOFI AVENTIS
  Company Number: US-SA-2025SA315670

PATIENT
  Age: 55 Year
  Sex: Female

DRUGS (7)
  1. LANTUS [Suspect]
     Active Substance: INSULIN GLARGINE
     Indication: Blood glucose abnormal
     Dosage: UNK, QD
     Route: 058
  2. LANTUS SOLOSTAR [Suspect]
     Active Substance: INSULIN GLARGINE
     Indication: Blood glucose increased
     Dosage: UNK UNK, QD
     Route: 058
  3. TOUJEO [Suspect]
     Active Substance: INSULIN GLARGINE
     Indication: Blood glucose increased
     Dosage: UNK UNK, QD
     Route: 058
  4. TOUJEO [Suspect]
     Active Substance: INSULIN GLARGINE
     Indication: Blood glucose increased
     Dosage: UNK UNK, QD
     Route: 058
  5. ADMELOG [Suspect]
     Active Substance: INSULIN LISPRO
     Indication: Blood glucose
     Dosage: UNK,QD
     Route: 058
  6. ADMELOG [Suspect]
     Active Substance: INSULIN LISPRO
     Indication: Blood glucose
     Dosage: UNK, QD
     Route: 058
  7. SOLIQUA 100/33 [Suspect]
     Active Substance: INSULIN GLARGINE\LIXISENATIDE
     Indication: Blood glucose abnormal
     Dosage: UNK, QD
     Route: 058

REACTIONS (1)
  - Drug hypersensitivity [Unknown]
